FAERS Safety Report 6658165-7 (Version None)
Quarter: 2010Q1

REPORT INFORMATION
  Report Type: 
  Country: None (occurrence: None)
  Receive Date: 20100330
  Receipt Date: 20100326
  Transmission Date: 20100710
  Serious: Yes (Other)
  Sender: FDA-Public Use
  Company Number: B0638918A

PATIENT
  Age: 30 Year
  Sex: Male

DRUGS (2)
  1. AVAMYS [Suspect]
     Route: 045
     Dates: start: 20100217, end: 20100220
  2. VENTOLIN [Concomitant]
     Indication: ASTHMA

REACTIONS (1)
  - ASTHMA [None]
